FAERS Safety Report 4392986-9 (Version None)
Quarter: 2004Q3

REPORT INFORMATION
  Report Type: 
  Country: None (occurrence: None)
  Receive Date: 20040702
  Receipt Date: 20040621
  Transmission Date: 20050211
  Serious: Yes (Other)
  Sender: FDA-Public Use
  Company Number: 2004042234

PATIENT
  Sex: Male

DRUGS (4)
  1. DOXAZOSIN (DOXAZOSIN) [Suspect]
     Indication: HYPERTENSION
     Dosage: 8 MG ( 8 MG, 1 IN 1 D), ORAL
     Route: 048
  2. CANDESARTAN (CANDESARTAN) [Suspect]
     Indication: HYPERTENSION
     Dosage: 16 MG (16 MG, 1 IN 1 D) , ORAL
     Route: 048
  3. LERCANIDIPINE [Suspect]
     Indication: HYPERTENSION
     Dosage: 10 MG ( 10 MG, 1 IN 1 D), ORAL
     Route: 048
  4. METOPROLOL TARTRATE [Suspect]
     Indication: HYPERTENSION
     Dosage: ORAL
     Route: 048

REACTIONS (1)
  - CEREBROVASCULAR DISORDER [None]
